FAERS Safety Report 8023899 (Version 2)
Quarter: 2013Q2

REPORT INFORMATION
  Report Type: Report from Study
  Country: MX (occurrence: MX)
  Receive Date: 20110706
  Receipt Date: 20130425
  Transmission Date: 20140414
  Serious: Yes (Death)
  Sender: FDA-Public Use
  Company Number: PHHY2011MX59134

PATIENT
  Age: 77 Year
  Sex: Female

DRUGS (1)
  1. EXFORGE [Suspect]
     Indication: HYPERTENSION
     Dosage: 1 DF, (160 MG VALSARTAN//5 MG AMLODIPINE), DAILY
     Dates: start: 201101

REACTIONS (1)
  - Death [Fatal]
